FAERS Safety Report 12640002 (Version 1)
Quarter: 2016Q3

REPORT INFORMATION
  Report Type: Spontaneous
  Country: US (occurrence: US)
  Receive Date: 20160810
  Receipt Date: 20160810
  Transmission Date: 20161109
  Serious: Yes (Hospitalization)
  Sender: FDA-Public Use
  Company Number: US-SUN PHARMACEUTICAL INDUSTRIES LTD-2016US-121537

PATIENT
  Age: 32 Year
  Sex: Male

DRUGS (1)
  1. CLONAZEPAM. [Suspect]
     Active Substance: CLONAZEPAM
     Indication: PRODUCT USED FOR UNKNOWN INDICATION
     Dosage: 15 PILLS OF 2 MG
     Route: 065

REACTIONS (3)
  - Intentional overdose [Unknown]
  - Blood cortisol decreased [Unknown]
  - Blood pressure decreased [Recovered/Resolved]
